FAERS Safety Report 7796748-1 (Version None)
Quarter: 2011Q4

REPORT INFORMATION
  Report Type: 
  Country: None (occurrence: None)
  Receive Date: 20111005
  Receipt Date: 20110927
  Transmission Date: 20120403
  Serious: Yes (Other)
  Sender: FDA-Public Use
  Company Number: US-JNJFOC-20110708264

PATIENT
  Sex: Male

DRUGS (7)
  1. ASACOL [Concomitant]
  2. FOLIC ACID [Concomitant]
  3. PREDNISONE [Concomitant]
  4. REMICADE [Suspect]
     Indication: COLITIS ULCERATIVE
     Route: 042
     Dates: start: 20110718, end: 20110718
  5. REMICADE [Suspect]
     Route: 042
     Dates: start: 20090601
  6. SOLU-MEDROL [Concomitant]
     Indication: PREMEDICATION
  7. REMICADE [Suspect]
     Dosage: DOSE ON 18-JUL-2011 WAS 500MG
     Route: 042
     Dates: start: 20110501

REACTIONS (2)
  - INFUSION RELATED REACTION [None]
  - RED MAN SYNDROME [None]
